FAERS Safety Report 25585202 (Version 5)
Quarter: 2025Q4

REPORT INFORMATION
  Report Type: Spontaneous
  Country: US (occurrence: None)
  Receive Date: 20250721
  Receipt Date: 20251219
  Transmission Date: 20260118
  Serious: Yes (Hospitalization, Other)
  Sender: UCB
  Company Number: US-UCBSA-2025042260

PATIENT
  Age: 42 Year
  Weight: 76.7 kg

DRUGS (10)
  1. ZILBRYSQ [Suspect]
     Active Substance: ZILUCOPLAN
     Indication: Myasthenia gravis
     Dosage: 23 MILLIGRAM, ONCE DAILY (QD)
  2. ZILBRYSQ [Suspect]
     Active Substance: ZILUCOPLAN
     Dosage: 23 MILLIGRAM, ONCE DAILY (QD)
  3. Samotadine [Concomitant]
     Indication: Product used for unknown indication
     Dosage: UNK
  4. Nertic [Concomitant]
     Indication: Product used for unknown indication
     Dosage: UNK
  5. mestetinon [Concomitant]
     Indication: Product used for unknown indication
     Dosage: UNK
  6. Levstin [Concomitant]
     Indication: Product used for unknown indication
     Dosage: UNK
  7. modafinanil [Concomitant]
     Indication: Product used for unknown indication
     Dosage: UNK
  8. PROPRANOLOL [Concomitant]
     Active Substance: PROPRANOLOL HYDROCHLORIDE
     Indication: Postural orthostatic tachycardia syndrome
     Dosage: UNK
  9. B12 [Concomitant]
     Indication: Product used for unknown indication
     Dosage: UNK
  10. weekly vitamin D [Concomitant]
     Indication: Product used for unknown indication
     Dosage: UNK, WEEKLY (QW)

REACTIONS (14)
  - Food allergy [Unknown]
  - Myasthenia gravis [Not Recovered/Not Resolved]
  - Peripheral swelling [Not Recovered/Not Resolved]
  - Headache [Not Recovered/Not Resolved]
  - Arthralgia [Not Recovered/Not Resolved]
  - Abdominal pain upper [Not Recovered/Not Resolved]
  - Urticaria [Not Recovered/Not Resolved]
  - Weight increased [Not Recovered/Not Resolved]
  - Stomatitis [Not Recovered/Not Resolved]
  - Hypersensitivity [Not Recovered/Not Resolved]
  - Illness [Recovered/Resolved]
  - Injection site mass [Not Recovered/Not Resolved]
  - Injection site vesicles [Not Recovered/Not Resolved]
  - Drug ineffective [Unknown]
